FAERS Safety Report 8444895-3 (Version None)
Quarter: 2012Q2

REPORT INFORMATION
  Report Type: 
  Country: None (occurrence: None)
  Receive Date: 20120618
  Receipt Date: 20100909
  Transmission Date: 20120825
  Serious: Yes (Hospitalization)
  Sender: FDA-Public Use
  Company Number: TW-AMGEN-TWNSP2010013537

PATIENT
  Age: 60 Year
  Sex: Male

DRUGS (3)
  1. ARANESP [Suspect]
     Indication: NEPHROGENIC ANAEMIA
     Dosage: UNCERTAINTY
     Route: 065
  2. RECORMON                           /00928301/ [Suspect]
     Indication: NEPHROGENIC ANAEMIA
     Dosage: UNK
     Dates: start: 20060101, end: 20080101
  3. RECORMON                           /00928301/ [Suspect]
     Dosage: UNK
     Dates: start: 20080101

REACTIONS (1)
  - HAEMATOCRIT DECREASED [None]
